FAERS Safety Report 4372558-2 (Version None)
Quarter: 2004Q2

REPORT INFORMATION
  Report Type: 
  Country: None (occurrence: None)
  Receive Date: 20040603
  Receipt Date: 20040503
  Transmission Date: 20050107
  Serious: Yes (Other)
  Sender: FDA-Public Use
  Company Number: M04-341-143

PATIENT

DRUGS (1)
  1. BORTEZOMIB [Suspect]

REACTIONS (3)
  - PNEUMONITIS [None]
  - PULMONARY FIBROSIS [None]
  - PYREXIA [None]
